FAERS Safety Report 23042015 (Version 2)
Quarter: 2023Q4

REPORT INFORMATION
  Report Type: Spontaneous
  Country: CN (occurrence: CN)
  Receive Date: 20231008
  Receipt Date: 20231012
  Transmission Date: 20240109
  Serious: Yes (Hospitalization, Other)
  Sender: FDA-Public Use
  Company Number: CN-SANDOZ-SDZ2023CN038084

PATIENT
  Sex: Female

DRUGS (15)
  1. FLUOROURACIL [Suspect]
     Active Substance: FLUOROURACIL
     Indication: Adenocarcinoma gastric
     Dosage: 4000 MG
     Route: 065
     Dates: start: 20200430
  2. CISPLATIN [Suspect]
     Active Substance: CISPLATIN
     Dosage: 50 MG
     Route: 065
     Dates: start: 202202
  3. CISPLATIN [Suspect]
     Active Substance: CISPLATIN
     Indication: Gastric cancer
     Dosage: 80 MG/60 MG
     Route: 033
     Dates: start: 202112
  4. LEVOLEUCOVORIN CALCIUM [Suspect]
     Active Substance: LEVOLEUCOVORIN CALCIUM
     Indication: Adenocarcinoma gastric
     Dosage: 325 MG
     Route: 065
     Dates: start: 20200430
  5. DOCETAXEL [Suspect]
     Active Substance: DOCETAXEL
     Dosage: 100 MG
     Route: 042
     Dates: start: 202112
  6. DOCETAXEL [Suspect]
     Active Substance: DOCETAXEL
     Dosage: 100 MG
     Route: 065
     Dates: start: 202202
  7. DOCETAXEL [Suspect]
     Active Substance: DOCETAXEL
     Indication: Adenocarcinoma gastric
     Dosage: 80 MG
     Route: 065
     Dates: start: 20200430
  8. LEUCOVORIN [Suspect]
     Active Substance: LEUCOVORIN\LEUCOVORIN CALCIUM
     Indication: Gastric cancer
     Dosage: UNK
     Route: 065
  9. OXALIPLATIN [Suspect]
     Active Substance: OXALIPLATIN
     Indication: Adenocarcinoma gastric
     Dosage: 130 MG
     Route: 065
     Dates: start: 20200430
  10. MANNITOL [Concomitant]
     Active Substance: MANNITOL
     Indication: Brain oedema
     Route: 042
  11. NALMEFENE [Concomitant]
     Active Substance: NALMEFENE
     Indication: Loss of consciousness
     Route: 065
  12. NALMEFENE [Concomitant]
     Active Substance: NALMEFENE
     Indication: Loss of consciousness
     Route: 065
  13. NIFEDIPINE [Concomitant]
     Active Substance: NIFEDIPINE
     Indication: Blood pressure measurement
     Dosage: 20 MG
     Route: 048
  14. PAPAVERINE [Concomitant]
     Active Substance: PAPAVERINE
     Indication: Vasodilation procedure
     Route: 065
  15. PAPAVERINE [Concomitant]
     Active Substance: PAPAVERINE
     Indication: Vasodilation procedure
     Route: 065

REACTIONS (3)
  - Posterior reversible encephalopathy syndrome [Recovering/Resolving]
  - Thrombocytopenia [Unknown]
  - Product use in unapproved indication [Unknown]
